FAERS Safety Report 5723639-X (Version None)
Quarter: 2008Q2

REPORT INFORMATION
  Report Type: 
  Country: None (occurrence: None)
  Receive Date: 20080425
  Receipt Date: 20080418
  Transmission Date: 20081010
  Serious: Yes (Other)
  Sender: FDA-Public Use
  Company Number: GXKR2008DE03742

PATIENT
  Age: 81 Year
  Sex: Male

DRUGS (7)
  1. METOHEXAL SUCC (NGX)(METOPROLOL) EXTENDED RELEASE TABLET, 95MG [Suspect]
     Dosage: 95 MG, BID, ORAL
     Route: 048
     Dates: start: 20060812, end: 20080228
  2. KINZALMONO (TELMISARTAN) [Concomitant]
  3. GODAMED TAH (ACETYLSALICYLIC ACID) [Concomitant]
  4. PIRACETAM AL (PIRACETAM) [Concomitant]
  5. AMLODIPINE [Concomitant]
  6. INSUMAN (INSULIN HUMAN INJECTION, ISOPHANE, INSULIN ZINC PROTAMINE INJ [Concomitant]
  7. ARELIX (PIRETANIDE SODIUM) [Concomitant]

REACTIONS (1)
  - BLINDNESS UNILATERAL [None]
